FAERS Safety Report 8852111 (Version 1)
Quarter: 2012Q4

REPORT INFORMATION
  Report Type: Spontaneous
  Country: DK (occurrence: None)
  Receive Date: 20121017
  Receipt Date: 20121017
  Transmission Date: 20130627
  Serious: Yes (Disabling)
  Sender: FDA-Public Use
  Company Number: 2012MA012317

PATIENT
  Age: 60 Year
  Sex: Female

DRUGS (5)
  1. LETROZOLE [Suspect]
     Dates: start: 20120607
  2. OLMESARTAN MEDOXOMIL [Concomitant]
  3. AVEENO [Concomitant]
  4. ITRACONAZOLE [Concomitant]
  5. FEMARA [Concomitant]

REACTIONS (3)
  - Urticaria [None]
  - Product quality issue [None]
  - Product substitution issue [None]
